FAERS Safety Report 4888183-0 (Version None)
Quarter: 2006Q1

REPORT INFORMATION
  Report Type: 
  Country: None (occurrence: None)
  Receive Date: 20060119
  Receipt Date: 20060119
  Transmission Date: 20060701
  Serious: Yes (Life-Threatening, Disabling)
  Sender: FDA-Public Use
  Company Number: None

PATIENT
  Age: 93 Year
  Sex: Male

DRUGS (1)
  1. ZYPREXA [Suspect]
     Dosage: 1 DOSE A DAY  I YEAR TO 2 YEARS

REACTIONS (8)
  - ABASIA [None]
  - AGGRESSION [None]
  - AMNESIA [None]
  - CONFUSIONAL STATE [None]
  - EATING DISORDER [None]
  - POLLAKIURIA [None]
  - READING DISORDER [None]
  - SPEECH DISORDER [None]
